FAERS Safety Report 23265650 (Version 2)
Quarter: 2024Q2

REPORT INFORMATION
  Report Type: Report from Study
  Country: US (occurrence: US)
  Receive Date: 20231206
  Receipt Date: 20240627
  Transmission Date: 20240716
  Serious: Yes (Other)
  Sender: FDA-Public Use
  Company Number: US-GILEAD-2023-0647413

PATIENT
  Age: 41 Year
  Sex: Female

DRUGS (20)
  1. AZTREONAM LYSINE [Suspect]
     Active Substance: AZTREONAM LYSINE
     Indication: Pseudomonas infection
     Dosage: 75 MG TAKEN 28 DAYS ON AND 28 DAYS OFF. QUANTITY OF 84
     Route: 065
  2. AZTREONAM LYSINE [Suspect]
     Active Substance: AZTREONAM LYSINE
     Indication: Cystic fibrosis
     Dosage: 75 MG, TID [INHALE 75 MG 3 TIMES A DAY CYCLING 28 DAYS ON AND 28 DAYS OFF]
     Route: 055
  3. CREON [Concomitant]
     Active Substance: PANCRELIPASE AMYLASE\PANCRELIPASE LIPASE\PANCRELIPASE PROTEASE
  4. CALCIUM [Concomitant]
     Active Substance: CALCIUM
  5. PREDNISONE [Concomitant]
     Active Substance: PREDNISONE
  6. PRAVASTATIN [Concomitant]
     Active Substance: PRAVASTATIN
  7. ASPIRIN [Concomitant]
     Active Substance: ASPIRIN
  8. ALLOPURINOL [Concomitant]
     Active Substance: ALLOPURINOL
  9. TACROLIMUS [Concomitant]
     Active Substance: TACROLIMUS
  10. URSODIOL [Concomitant]
     Active Substance: URSODIOL
  11. AZITHROMYCIN [Concomitant]
     Active Substance: AZITHROMYCIN
  12. LEVOTHYROXINE [Concomitant]
     Active Substance: LEVOTHYROXINE\LEVOTHYROXINE SODIUM
  13. MAGNESIUM [Concomitant]
     Active Substance: MAGNESIUM
  14. OMEPRAZOLE [Concomitant]
     Active Substance: DONEPEZIL HYDROCHLORIDE\OMEPRAZOLE\OMEPRAZOLE MAGNESIUM
  15. CETIRIZINE [Concomitant]
     Active Substance: CETIRIZINE HYDROCHLORIDE
  16. FLUCONAZOLE [Concomitant]
     Active Substance: FLUCONAZOLE
  17. INSULIN ASPART [Concomitant]
     Active Substance: INSULIN ASPART
  18. INSULIN DEGLUDEC [Concomitant]
     Active Substance: INSULIN DEGLUDEC
  19. DAPSONE [Concomitant]
     Active Substance: DAPSONE
  20. SERTRALINE [Concomitant]
     Active Substance: SERTRALINE HYDROCHLORIDE

REACTIONS (1)
  - Lung transplant [Unknown]

NARRATIVE: CASE EVENT DATE: 20231130
